FAERS Safety Report 8232237-8 (Version None)
Quarter: 2012Q1

REPORT INFORMATION
  Report Type: 
  Country: None (occurrence: None)
  Receive Date: 20120323
  Receipt Date: 20120229
  Transmission Date: 20120608
  Serious: Yes (Life-Threatening, Hospitalization, Other)
  Sender: FDA-Public Use
  Company Number: US-ACTELION-A-US2011-50904

PATIENT

DRUGS (15)
  1. LISINOPRIL [Concomitant]
  2. NORVASC [Concomitant]
  3. METROGEL [Concomitant]
  4. TRACLEER [Suspect]
     Indication: PULMONARY ARTERIAL HYPERTENSION
     Dosage: 125 MG, BID
     Route: 048
     Dates: start: 20080425, end: 20110815
  5. LASIX [Concomitant]
  6. GLUCOTROL [Concomitant]
  7. COUMADIN [Concomitant]
  8. PERCOCET-5 [Concomitant]
  9. NASONEX [Concomitant]
  10. ZOFRAN [Concomitant]
  11. LANTUS [Concomitant]
  12. VITAMIN B12 [Concomitant]
  13. TENORMIN [Concomitant]
  14. METFORMIN HCL [Concomitant]
  15. M.V.I. [Concomitant]

REACTIONS (32)
  - URINARY TRACT INFECTION [None]
  - ASPARTATE AMINOTRANSFERASE INCREASED [None]
  - WEIGHT DECREASED [None]
  - DEHYDRATION [None]
  - INSOMNIA [None]
  - ALANINE AMINOTRANSFERASE INCREASED [None]
  - BLOOD ALKALINE PHOSPHATASE INCREASED [None]
  - ASTHENIA [None]
  - CONTUSION [None]
  - NASAL CONGESTION [None]
  - ANXIETY [None]
  - ENCEPHALOPATHY [None]
  - EPISTAXIS [None]
  - NOCTURIA [None]
  - HEPATIC NEOPLASM MALIGNANT [None]
  - HYPONATRAEMIA [None]
  - ABDOMINAL PAIN [None]
  - CONFUSIONAL STATE [None]
  - ABDOMINAL PAIN UPPER [None]
  - TREMOR [None]
  - DECREASED APPETITE [None]
  - PALPITATIONS [None]
  - BLADDER CANCER [None]
  - BLOOD CREATININE INCREASED [None]
  - NAUSEA [None]
  - FATIGUE [None]
  - BLOOD BILIRUBIN INCREASED [None]
  - AMMONIA INCREASED [None]
  - ARTHRITIS [None]
  - DRY SKIN [None]
  - DYSPNOEA EXERTIONAL [None]
  - VOMITING [None]
